FAERS Safety Report 15879429 (Version 1)
Quarter: 2019Q1

REPORT INFORMATION
  Report Type: Spontaneous
  Country: US (occurrence: US)
  Receive Date: 20190126
  Receipt Date: 20190126
  Transmission Date: 20190417
  Serious: Yes (Other)
  Sender: FDA-Public Use
  Company Number: None

PATIENT
  Age: 38 Year
  Sex: Female
  Weight: 49.5 kg

DRUGS (1)
  1. SCOPOLAMINE TRANSDERMAL PATCH [Suspect]
     Active Substance: SCOPOLAMINE
     Indication: MOTION SICKNESS
     Dosage: ?          QUANTITY:2 PATCH(ES);OTHER FREQUENCY:EVERY 72 HRS;?
     Route: 062
     Dates: start: 20190110, end: 20190115

REACTIONS (2)
  - Withdrawal syndrome [None]
  - Vision blurred [None]

NARRATIVE: CASE EVENT DATE: 20190115
